FAERS Safety Report 9862247 (Version 1)
Quarter: 2014Q1

REPORT INFORMATION
  Report Type: Spontaneous
  Country: US (occurrence: US)
  Receive Date: 20140203
  Receipt Date: 20140203
  Transmission Date: 20141002
  Serious: No
  Sender: FDA-Public Use
  Company Number: US-OPTIMER-20130353

PATIENT
  Age: 64 Year
  Sex: Female

DRUGS (4)
  1. DIFICID [Suspect]
     Indication: CLOSTRIDIAL INFECTION
     Dosage: 200 MG, BID
     Route: 048
     Dates: start: 20130808, end: 20130817
  2. DIFICID [Suspect]
     Dosage: 200 MG, BID
     Route: 048
     Dates: start: 20130903
  3. VANCOMYCIN [Concomitant]
     Indication: CLOSTRIDIAL INFECTION
     Dosage: UNK
     Dates: start: 20130701, end: 20130716
  4. VANCOMYCIN [Concomitant]
     Dosage: UNK
     Dates: start: 20130716, end: 20130808

REACTIONS (1)
  - No therapeutic response [Recovered/Resolved]
